FAERS Safety Report 7220536-8 (Version None)
Quarter: 2011Q1

REPORT INFORMATION
  Report Type: 
  Country: None (occurrence: None)
  Receive Date: 20110111
  Receipt Date: 20110110
  Transmission Date: 20110831
  Serious: Yes (Other)
  Sender: FDA-Public Use
  Company Number: US-CEPHALON-2011000144

PATIENT
  Sex: Male
  Weight: 73 kg

DRUGS (5)
  1. AZILECT [Concomitant]
     Dates: start: 20090901
  2. NUVIGIL [Suspect]
     Indication: FATIGUE
     Route: 048
     Dates: start: 20110107, end: 20110110
  3. CENTRUM SILVER [Concomitant]
  4. ALEVE [Concomitant]
  5. ASPIRIN [Concomitant]

REACTIONS (6)
  - BALANCE DISORDER [None]
  - FEELING ABNORMAL [None]
  - BURNING SENSATION [None]
  - GAIT DISTURBANCE [None]
  - ABDOMINAL DISCOMFORT [None]
  - TREMOR [None]
